FAERS Safety Report 7271717-9 (Version None)
Quarter: 2011Q1

REPORT INFORMATION
  Report Type: 
  Country: None (occurrence: None)
  Receive Date: 20110203
  Receipt Date: 20110120
  Transmission Date: 20110831
  Serious: Yes (Hospitalization)
  Sender: FDA-Public Use
  Company Number: JP-RANBAXY-2010US-32005

PATIENT
  Age: 31 Year
  Sex: Female

DRUGS (1)
  1. PHENOBARBITAL [Suspect]
     Indication: DEPRESSION
     Dosage: UNK, UNK
     Route: 065

REACTIONS (4)
  - DRUG RASH WITH EOSINOPHILIA AND SYSTEMIC SYMPTOMS [None]
  - OFF LABEL USE [None]
  - LYMPHOCYTOSIS [None]
  - HUMAN HERPESVIRUS 6 INFECTION [None]
